FAERS Safety Report 20578182 (Version 1)
Quarter: 2022Q1

REPORT INFORMATION
  Report Type: Spontaneous
  Country: None (occurrence: JP)
  Receive Date: 20220310
  Receipt Date: 20220310
  Transmission Date: 20220423
  Serious: Yes (Other)
  Sender: FDA-Public Use
  Company Number: JP-Acacia Pharma Limited-2126642

PATIENT
  Age: 78 Year
  Sex: Male

DRUGS (3)
  1. BYFAVO [Suspect]
     Active Substance: REMIMAZOLAM BESYLATE
     Indication: General anaesthesia
     Route: 042
     Dates: start: 20210818, end: 20210818
  2. ROCURONIUM BROMIDE [Concomitant]
     Active Substance: ROCURONIUM BROMIDE
     Route: 042
     Dates: start: 20210818
  3. REMIFENTANIL HYDROCHLORIDE [Concomitant]
     Active Substance: REMIFENTANIL HYDROCHLORIDE
     Route: 042
     Dates: start: 20210818

REACTIONS (5)
  - Anaphylactic shock [Recovered/Resolved]
  - Blood pressure decreased [Recovered/Resolved]
  - Tachycardia [Recovered/Resolved]
  - Cyanosis [Recovered/Resolved]
  - Tryptase increased [Recovered/Resolved]

NARRATIVE: CASE EVENT DATE: 20210818
